FAERS Safety Report 22627838 (Version 1)
Quarter: 2023Q2

REPORT INFORMATION
  Report Type: Spontaneous
  Country: US (occurrence: US)
  Receive Date: 20230622
  Receipt Date: 20230622
  Transmission Date: 20230722
  Serious: No
  Sender: FDA-Public Use
  Company Number: US-BRISTOL-MYERS SQUIBB COMPANY-2023-087864

PATIENT
  Age: 80 Year
  Sex: Male

DRUGS (1)
  1. REVLIMID [Suspect]
     Active Substance: LENALIDOMIDE
     Indication: Follicular lymphoma
     Dosage: DOSE : UNKNOWN;     FREQ : 1 DAILY X 14 DAYS/28 DAY CYCLE
     Route: 048
     Dates: start: 20210622

REACTIONS (2)
  - White blood cell count decreased [Unknown]
  - Off label use [Unknown]
